FAERS Safety Report 4639582-3 (Version None)
Quarter: 2005Q2

REPORT INFORMATION
  Report Type: 
  Country: None (occurrence: None)
  Receive Date: 20050328
  Receipt Date: 20050209
  Transmission Date: 20051028
  Serious: No
  Sender: FDA-Public Use
  Company Number: USA050290457

PATIENT
  Age: 13 Year
  Sex: Male
  Weight: 59 kg

DRUGS (1)
  1. STRATTERA [Suspect]
     Indication: ATTENTION DEFICIT/HYPERACTIVITY DISORDER
     Dosage: 80 MG/ 1 DAY
     Dates: start: 20040201, end: 20041201

REACTIONS (5)
  - COMMUNICATION DISORDER [None]
  - FEELING ABNORMAL [None]
  - GROWTH RETARDATION [None]
  - INSOMNIA [None]
  - SOMNOLENCE [None]
